FAERS Safety Report 25623336 (Version 1)
Quarter: 2025Q3

REPORT INFORMATION
  Report Type: Spontaneous
  Country: US (occurrence: None)
  Receive Date: 20250730
  Receipt Date: 20250730
  Transmission Date: 20251021
  Serious: No
  Sender: FDA-CTU
  Company Number: None

PATIENT
  Age: 26 Year
  Sex: Female
  Weight: 70.02 kg

DRUGS (7)
  1. SERTRALINE HYDROCHLORIDE [Suspect]
     Active Substance: SERTRALINE HYDROCHLORIDE
     Indication: Generalised anxiety disorder
     Dosage: 200 MG DAILY ORAL
     Route: 048
     Dates: start: 20210830
  2. SERTRALINE HYDROCHLORIDE [Suspect]
     Active Substance: SERTRALINE HYDROCHLORIDE
     Indication: Obsessive-compulsive disorder
  3. RIZATRIPTAN [Concomitant]
     Active Substance: RIZATRIPTAN
  4. KYLEENA [Concomitant]
     Active Substance: LEVONORGESTREL
  5. AIMOVIG [Concomitant]
     Active Substance: ERENUMAB-AOOE
  6. Nortriptyline 25mg cap [Concomitant]
  7. Adapalene 0.1% cream [Concomitant]

REACTIONS (1)
  - Libido decreased [None]

NARRATIVE: CASE EVENT DATE: 20250303
